FAERS Safety Report 9729407 (Version 1)
Quarter: 2013Q4

REPORT INFORMATION
  Report Type: Spontaneous
  Country: US (occurrence: US)
  Receive Date: 20131204
  Receipt Date: 20131204
  Transmission Date: 20140711
  Serious: Yes (Hospitalization)
  Sender: FDA-Public Use
  Company Number: US-GILEAD-2009-0021158

PATIENT
  Sex: Female
  Weight: 100.7 kg

DRUGS (12)
  1. LETAIRIS [Suspect]
     Indication: PULMONARY ARTERIAL HYPERTENSION
     Route: 048
     Dates: start: 20090202
  2. COUMADIN [Concomitant]
  3. LASIX [Concomitant]
  4. AMLODIPINE [Concomitant]
  5. KLOR-CON [Concomitant]
  6. VYTORIN [Concomitant]
  7. LANTUS [Concomitant]
  8. METFORMIN [Concomitant]
  9. LIALDA [Concomitant]
  10. ALLOPURINOL [Concomitant]
  11. XALATAN [Concomitant]
  12. PERFOROMIST [Concomitant]

REACTIONS (1)
  - Dyspnoea [Unknown]
